FAERS Safety Report 5838455-8 (Version None)
Quarter: 2008Q3

REPORT INFORMATION
  Report Type: 
  Country: None (occurrence: None)
  Receive Date: 20080806
  Receipt Date: 20080722
  Transmission Date: 20090109
  Serious: Yes (Death)
  Sender: FDA-Public Use
  Company Number: 08-207

PATIENT
  Age: 57 Year
  Sex: Male

DRUGS (1)
  1. FAZACLO ODT [Suspect]
     Dosage: 500 MG DAILY PO
     Route: 048
     Dates: start: 20071019, end: 20080618

REACTIONS (1)
  - HEAD INJURY [None]
